FAERS Safety Report 25567951 (Version 1)
Quarter: 2025Q3

REPORT INFORMATION
  Report Type: Spontaneous
  Country: GB (occurrence: GB)
  Receive Date: 20250716
  Receipt Date: 20250716
  Transmission Date: 20251020
  Serious: Yes (Congenital Anomaly)
  Sender: NORDIC PHARMA
  Company Number: GB-002147023-NVSC2025GB104600

PATIENT
  Age: 20 Week

DRUGS (2)
  1. METHOTREXATE [Suspect]
     Active Substance: METHOTREXATE
     Indication: Foetal exposure during pregnancy
     Route: 064
  2. COSENTYX [Concomitant]
     Active Substance: SECUKINUMAB
     Indication: Foetal exposure during pregnancy
     Route: 064

REACTIONS (2)
  - Cleft lip [Unknown]
  - Maternal exposure during pregnancy [Unknown]
